FAERS Safety Report 4634455-4 (Version None)
Quarter: 2005Q2

REPORT INFORMATION
  Report Type: 
  Country: None (occurrence: None)
  Receive Date: 20050412
  Receipt Date: 20050118
  Transmission Date: 20051028
  Serious: Yes (Other)
  Sender: FDA-Public Use
  Company Number: 2005BI001183

PATIENT
  Sex: Male
  Weight: 72.5755 kg

DRUGS (2)
  1. AVONEX [Suspect]
     Indication: MULTIPLE SCLEROSIS
     Dosage: IM
     Route: 030
  2. BETASERON [Concomitant]

REACTIONS (5)
  - COGNITIVE DISORDER [None]
  - DIFFICULTY IN WALKING [None]
  - HEARING IMPAIRED [None]
  - INJECTION SITE NECROSIS [None]
  - TREMOR [None]
